FAERS Safety Report 6893475-X (Version None)
Quarter: 2010Q3

REPORT INFORMATION
  Report Type: 
  Country: None (occurrence: None)
  Receive Date: 20100731
  Receipt Date: 20090917
  Transmission Date: 20110219
  Serious: Yes (Hospitalization, Other)
  Sender: FDA-Public Use
  Company Number: US-PFIZER INC-2009272324

PATIENT
  Sex: Female

DRUGS (5)
  1. LIPITOR [Suspect]
     Indication: BLOOD CHOLESTEROL INCREASED
     Dosage: UNK
     Dates: start: 20071101, end: 20090905
  2. LIPITOR [Suspect]
     Indication: MYOCARDIAL INFARCTION
  3. LOPRESSOR [Concomitant]
     Dosage: UNK
  4. CAPTOPRIL [Concomitant]
     Dosage: UNK
  5. ASPIRIN [Concomitant]
     Dosage: UNK

REACTIONS (2)
  - LIVER INJURY [None]
  - RHABDOMYOLYSIS [None]
